FAERS Safety Report 4674197-2 (Version None)
Quarter: 2005Q2

REPORT INFORMATION
  Report Type: 
  Country: None (occurrence: None)
  Receive Date: 20050524
  Receipt Date: 20050506
  Transmission Date: 20051028
  Serious: Yes (Death)
  Sender: FDA-Public Use
  Company Number: USA050597605

PATIENT
  Age: 22 Year
  Sex: Male

DRUGS (2)
  1. CYMBALTA [Suspect]
     Dosage: 60 MG DAY
  2. KLONOPIN [Concomitant]

REACTIONS (4)
  - EYE DISORDER [None]
  - MENTAL STATUS CHANGES [None]
  - SNORING [None]
  - VOMITING [None]
